FAERS Safety Report 8860402 (Version 1)
Quarter: 2012Q4

REPORT INFORMATION
  Report Type: Report from Study
  Country: CA (occurrence: CA)
  Receive Date: 20121025
  Receipt Date: 20121025
  Transmission Date: 20130627
  Serious: Yes (Other)
  Sender: FDA-Public Use
  Company Number: CA-JNJFOC-20121008351

PATIENT
  Sex: Male
  Weight: 53 kg

DRUGS (5)
  1. REMICADE [Suspect]
     Indication: ANKYLOSING SPONDYLITIS
     Route: 042
     Dates: start: 20080628
  2. REMICADE [Suspect]
     Indication: ANKYLOSING SPONDYLITIS
     Route: 042
     Dates: start: 20121012
  3. INDOMETHACIN [Concomitant]
     Route: 065
  4. FOLIC ACID [Concomitant]
     Route: 048
  5. VITAMIN [Concomitant]
     Route: 048

REACTIONS (1)
  - Surgery [Unknown]
